FAERS Safety Report 19130006 (Version 2)
Quarter: 2021Q3

REPORT INFORMATION
  Report Type: Spontaneous
  Country: AR (occurrence: AR)
  Receive Date: 20210413
  Receipt Date: 20210708
  Transmission Date: 20211014
  Serious: Yes (Other)
  Sender: FDA-Public Use
  Company Number: AR-SA-2021SA094898

PATIENT
  Age: 35 Year
  Sex: Female

DRUGS (1)
  1. CLEXANE [Suspect]
     Active Substance: ENOXAPARIN SODIUM
     Indication: HYPERCOAGULATION
     Dosage: 40 MG, QD
     Route: 058
     Dates: start: 202009

REACTIONS (4)
  - Abortion spontaneous [Unknown]
  - Product availability issue [Unknown]
  - Maternal exposure during pregnancy [Unknown]
  - Off label use [Unknown]
